FAERS Safety Report 21090964 (Version 1)
Quarter: 2022Q3

REPORT INFORMATION
  Report Type: Report from Study
  Country: CO (occurrence: CO)
  Receive Date: 20220716
  Receipt Date: 20220716
  Transmission Date: 20221027
  Serious: Yes (Other)
  Sender: FDA-Public Use
  Company Number: CO-ABBVIE-22K-036-4445992-00

PATIENT
  Sex: Female
  Weight: 80 kg

DRUGS (6)
  1. HUMIRA [Suspect]
     Active Substance: ADALIMUMAB
     Indication: Ankylosing spondylitis
     Route: 058
     Dates: start: 20220427, end: 20220622
  2. AZITHROMYCIN [Concomitant]
     Active Substance: AZITHROMYCIN
     Indication: Tooth extraction
     Dates: start: 20220629, end: 20220704
  3. BENZIRIN [Concomitant]
     Indication: Tooth extraction
     Route: 002
  4. LOSARTAN [Concomitant]
     Active Substance: LOSARTAN
     Indication: Product used for unknown indication
     Route: 048
  5. CARVEDILOL [Concomitant]
     Active Substance: CARVEDILOL
     Indication: Product used for unknown indication
     Route: 048
  6. HYDROCHLOROTHIAZIDE [Concomitant]
     Active Substance: HYDROCHLOROTHIAZIDE
     Indication: Product used for unknown indication
     Route: 048

REACTIONS (10)
  - Tooth extraction [Recovered/Resolved]
  - Mouth swelling [Recovered/Resolved]
  - Oral disorder [Recovered/Resolved]
  - Dyskinesia [Recovered/Resolved]
  - Nasal congestion [Not Recovered/Not Resolved]
  - Tooth fracture [Recovered/Resolved]
  - Oral pain [Recovered/Resolved]
  - Impaired healing [Unknown]
  - Oral pain [Unknown]
  - Influenza like illness [Not Recovered/Not Resolved]

NARRATIVE: CASE EVENT DATE: 20220101
